FAERS Safety Report 8504436-9 (Version None)
Quarter: 2012Q3

REPORT INFORMATION
  Report Type: 
  Country: None (occurrence: None)
  Receive Date: 20120711
  Receipt Date: 20120702
  Transmission Date: 20120928
  Serious: Yes (Disabling)
  Sender: FDA-Public Use
  Company Number: AU-BAXTER-2012BAX010406

PATIENT
  Sex: Female

DRUGS (2)
  1. KIOVIG [Suspect]
     Route: 042
     Dates: start: 20120615, end: 20120617
  2. KIOVIG [Suspect]
     Route: 042
     Dates: start: 20120621, end: 20120622

REACTIONS (5)
  - PYREXIA [None]
  - RASH [None]
  - NEUTROPENIA [None]
  - HEADACHE [None]
  - THROMBOCYTOPENIA [None]
